FAERS Safety Report 18946596 (Version 1)
Quarter: 2021Q1

REPORT INFORMATION
  Report Type: Spontaneous
  Country: JP (occurrence: JP)
  Receive Date: 20210226
  Receipt Date: 20210226
  Transmission Date: 20210420
  Serious: Yes (Hospitalization, Other)
  Sender: FDA-Public Use
  Company Number: JP-PFIZER INC-2021162458

PATIENT
  Age: 82 Year
  Sex: Female

DRUGS (11)
  1. TRAZODONE HYDROCHLORIDE. [Suspect]
     Active Substance: TRAZODONE HYDROCHLORIDE
     Dosage: UNK (DOSE REDUCTION)
  2. EDOXABAN [Concomitant]
     Active Substance: EDOXABAN TOSYLATE
     Dosage: 30 MG, 1X/DAY (AFTER BREAKFAST)
  3. ACETAMINOPHEN. [Concomitant]
     Active Substance: ACETAMINOPHEN
     Dosage: 500 MG, 3X/DAY (AFTER MEAL)
  4. QUETIAPINE FUMARATE. [Suspect]
     Active Substance: QUETIAPINE FUMARATE
     Indication: DELIRIUM
     Dosage: 25 MG, 1X/DAY (BEFORE SLEEP)
  5. QUETIAPINE FUMARATE. [Suspect]
     Active Substance: QUETIAPINE FUMARATE
     Dosage: UNK (DOSE REDUCTION)
  6. AMLODIPINE BESILATE [Suspect]
     Active Substance: AMLODIPINE BESYLATE
     Dosage: 5 MG, 1X/DAY AFTER BREAKFAST
  7. OLMESARTAN [Suspect]
     Active Substance: OLMESARTAN
     Dosage: 20 MG, 1X/DAY (AFTER BREAKFAST)
  8. DOXAZOSIN MESILATE [Suspect]
     Active Substance: DOXAZOSIN MESYLATE
     Dosage: 2 MG, 1X/DAY (BEFORE SLEEP)
  9. PREGABALIN. [Suspect]
     Active Substance: PREGABALIN
     Dosage: 2 DF, 1X/DAY (BEFORE SLEEP)
  10. PREGABALIN. [Suspect]
     Active Substance: PREGABALIN
     Dosage: UNK (REDUCED DOSE)
  11. TRAZODONE HYDROCHLORIDE. [Suspect]
     Active Substance: TRAZODONE HYDROCHLORIDE
     Dosage: 2 DF, 1X/DAY (AFTER DINNER)

REACTIONS (6)
  - Multiple drug therapy [Unknown]
  - Dizziness [Unknown]
  - Blood pressure inadequately controlled [Unknown]
  - Fall [Unknown]
  - Femur fracture [Unknown]
  - Somnolence [Unknown]
